FAERS Safety Report 21288358 (Version 1)
Quarter: 2022Q3

REPORT INFORMATION
  Report Type: Spontaneous
  Country: US (occurrence: US)
  Receive Date: 20220902
  Receipt Date: 20220902
  Transmission Date: 20221026
  Serious: Yes (Other)
  Sender: FDA-Public Use
  Company Number: US-ABBVIE-22K-163-4420698-00

PATIENT
  Age: 38 Year

DRUGS (1)
  1. SKYRIZI [Suspect]
     Active Substance: RISANKIZUMAB-RZAA
     Indication: Psoriasis
     Dosage: STARTED MORE THAN 1 YEAR
     Route: 058

REACTIONS (2)
  - Tuberculosis [Not Recovered/Not Resolved]
  - Latent tuberculosis [Unknown]

NARRATIVE: CASE EVENT DATE: 20220501
